FAERS Safety Report 6724717-9 (Version None)
Quarter: 2010Q2

REPORT INFORMATION
  Report Type: 
  Country: None (occurrence: None)
  Receive Date: 20100513
  Receipt Date: 20100505
  Transmission Date: 20101027
  Serious: Yes (Death)
  Sender: FDA-Public Use
  Company Number: FR-MERCK-1005FRA00013

PATIENT
  Age: 82 Year
  Sex: Male

DRUGS (18)
  1. PRIMAXIN [Suspect]
     Indication: SEPSIS
     Route: 042
     Dates: start: 20091013, end: 20091124
  2. RITUXIMAB [Suspect]
     Route: 042
     Dates: start: 20090918
  3. RITUXIMAB [Suspect]
     Route: 042
     Dates: start: 20091005
  4. RITUXIMAB [Suspect]
     Route: 042
     Dates: start: 20091012
  5. RITUXIMAB [Suspect]
     Route: 042
     Dates: start: 20091022
  6. OFLOXACIN [Suspect]
     Route: 042
     Dates: start: 20090901, end: 20091124
  7. OFLOXACIN [Suspect]
     Indication: SEPSIS
     Route: 048
     Dates: start: 20090928, end: 20091124
  8. PREDNISONE TAB [Suspect]
     Route: 048
     Dates: start: 20090914
  9. VALSARTAN [Concomitant]
     Route: 048
  10. ISRADIPINE [Concomitant]
     Route: 048
  11. FUROSEMIDE [Concomitant]
     Route: 048
  12. NITROGLYCERIN [Concomitant]
     Route: 061
  13. DIGOXIN [Concomitant]
     Route: 048
  14. FERROUS SULFATE [Concomitant]
     Route: 048
  15. CALCIUM CARBONATE [Concomitant]
     Route: 048
  16. PRAVASTATIN SODIUM [Concomitant]
     Route: 048
  17. PROPECIA [Concomitant]
     Route: 048
  18. FLUINDIONE [Concomitant]
     Route: 065

REACTIONS (3)
  - BRONCHOPULMONARY ASPERGILLOSIS [None]
  - NEUTROPENIA [None]
  - PNEUMOCYSTIS JIROVECI INFECTION [None]
